FAERS Safety Report 8876658 (Version 3)
Quarter: 2012Q4

REPORT INFORMATION
  Report Type: 
  Country: JP (occurrence: JP)
  Receive Date: 20121029
  Receipt Date: 20121210
  Transmission Date: 20130627
  Serious: No
  Sender: FDA-Public Use
  Company Number: PHHY2012JP096155

PATIENT
  Sex: Male
  Weight: 81 kg

DRUGS (6)
  1. ALLOPURINOL [Suspect]
     Route: 048
  2. LOXOPROFEN [Suspect]
     Route: 048
  3. CEFTRIAXONE [Suspect]
     Route: 041
  4. SELOKEN [Suspect]
     Route: 048
  5. NICARDIPINE HYDROCHLORIDE [Concomitant]
     Indication: CARDIOVASCULAR DISORDER
     Route: 041
  6. CEFCAPENE PIVOXIL HYDROCHLORIDE [Concomitant]
     Route: 048

REACTIONS (1)
  - Hypersensitivity [Unknown]
